FAERS Safety Report 8466139-9 (Version None)
Quarter: 2012Q2

REPORT INFORMATION
  Report Type: 
  Country: None (occurrence: None)
  Receive Date: 20120626
  Receipt Date: 20120614
  Transmission Date: 20120825
  Serious: No
  Sender: FDA-Public Use
  Company Number: US-ASTRAZENECA-2012SE40172

PATIENT
  Age: 59 Year
  Sex: Male
  Weight: 79.4 kg

DRUGS (6)
  1. SINGULAIR [Concomitant]
  2. SYMBICORT [Suspect]
     Indication: BRONCHOSPASM
     Dosage: TWO PUFFS, TWICE DAILY
     Route: 055
     Dates: start: 20120501
  3. SYMBICORT [Suspect]
     Indication: ASTHMA
     Dosage: TWO PUFFS, TWICE DAILY
     Route: 055
     Dates: start: 20120501
  4. XOPENEX [Concomitant]
  5. SYMBICORT [Suspect]
     Indication: MULTIPLE ALLERGIES
     Dosage: TWO PUFFS, TWICE DAILY
     Route: 055
     Dates: start: 20120501
  6. ALLERGY SHOTS [Concomitant]
     Dosage: EVERY TWO WEEKS

REACTIONS (3)
  - BRONCHOSPASM [None]
  - THERAPEUTIC RESPONSE UNEXPECTED [None]
  - OFF LABEL USE [None]
